FAERS Safety Report 9243864 (Version 1)
Quarter: 2013Q1

REPORT INFORMATION
  Report Type: Spontaneous
  Country: US (occurrence: None)
  Receive Date: 20121123
  Receipt Date: 20121123
  Transmission Date: 20140127
  Serious: No
  Sender: FDA-Public Use
  Company Number: 357450

PATIENT
  Age: 71 Year
  Sex: Male

DRUGS (2)
  1. VICTOZA [Suspect]
     Indication: TYPE 2 DIABETES MELLITUS
     Route: 058
     Dates: start: 201207
  2. GLUCOVANCE (GLIBENCLAMIDE, METFROMIN HYDROCHLORIDE) [Concomitant]

REACTIONS (6)
  - Visual acuity reduced [None]
  - Decreased appetite [None]
  - Eructation [None]
  - Gastrooesophageal reflux disease [None]
  - Blood glucose decreased [None]
  - Nausea [None]
